FAERS Safety Report 19105891 (Version 2)
Quarter: 2022Q3

REPORT INFORMATION
  Report Type: Spontaneous
  Country: US (occurrence: US)
  Receive Date: 20210408
  Receipt Date: 20220914
  Transmission Date: 20221027
  Serious: Yes (Other)
  Sender: FDA-Public Use
  Company Number: US-SA-SAC20210402001092

PATIENT
  Age: 89 Year
  Sex: Female

DRUGS (1)
  1. ZANTAC [Suspect]
     Active Substance: RANITIDINE HYDROCHLORIDE
     Dosage: 150 MG, QD
     Route: 065
     Dates: start: 201701, end: 202001

REACTIONS (2)
  - Lung carcinoma cell type unspecified stage IV [Unknown]
  - Skin cancer [Unknown]

NARRATIVE: CASE EVENT DATE: 20190801
